FAERS Safety Report 19157369 (Version 1)
Quarter: 2021Q2

REPORT INFORMATION
  Report Type: Spontaneous
  Country: US (occurrence: US)
  Receive Date: 20210420
  Receipt Date: 20210420
  Transmission Date: 20210717
  Serious: Yes (Other)
  Sender: FDA-Public Use
  Company Number: US-GLAXOSMITHKLINE-US2021GSK084818

PATIENT
  Sex: Male

DRUGS (2)
  1. RANITIDINE. [Suspect]
     Active Substance: RANITIDINE
     Indication: GASTRIC DISORDER
     Dosage: UNKNOWN AT THIS TIME PRESCRIPTION QD OR WE
     Route: 065
     Dates: start: 201501, end: 201801
  2. RANITIDINE. [Suspect]
     Active Substance: RANITIDINE
     Indication: GASTRIC DISORDER
     Dosage: UNKNOWN AT THIS TIME PRESCRIPTION QD OR WE
     Route: 065
     Dates: start: 201501, end: 201801

REACTIONS (1)
  - Bladder cancer [Unknown]
